FAERS Safety Report 22055836 (Version 2)
Quarter: 2023Q1

REPORT INFORMATION
  Report Type: Spontaneous
  Country: IT (occurrence: IT)
  Receive Date: 20230302
  Receipt Date: 20230314
  Transmission Date: 20230418
  Serious: Yes (Death)
  Sender: FDA-Public Use
  Company Number: IT-TEVA-2023-IT-2860774

PATIENT
  Age: 29 Year
  Sex: Male
  Weight: 80 kg

DRUGS (5)
  1. FENTANYL [Interacting]
     Active Substance: FENTANYL
     Indication: Drug abuse
     Dosage: FORMULATION: TRANSDERMAL PATCH (ADMINISTERED BY CHEWING AND INGESTING IT)
     Route: 048
  2. ALPRAZOLAM [Interacting]
     Active Substance: ALPRAZOLAM
     Indication: Product used for unknown indication
     Route: 065
  3. METHADONE [Interacting]
     Active Substance: METHADONE HYDROCHLORIDE
     Indication: Product used for unknown indication
     Route: 065
  4. HEROIN [Concomitant]
     Active Substance: DIAMORPHINE
     Indication: Product used for unknown indication
     Route: 065
  5. COCAINE [Concomitant]
     Active Substance: COCAINE
     Indication: Product used for unknown indication
     Route: 065

REACTIONS (11)
  - Musculoskeletal stiffness [Fatal]
  - Acute respiratory failure [Fatal]
  - Toxicity to various agents [Fatal]
  - Drug abuse [Fatal]
  - Drug interaction [Fatal]
  - Brain oedema [Fatal]
  - Pulmonary oedema [Fatal]
  - Vascular occlusion [Fatal]
  - Asphyxia [Fatal]
  - Emphysema [Fatal]
  - Incorrect route of product administration [Fatal]
